FAERS Safety Report 10183597 (Version 1)
Quarter: 2014Q2

REPORT INFORMATION
  Report Type: Spontaneous
  Country: AU (occurrence: AU)
  Receive Date: 20140520
  Receipt Date: 20140520
  Transmission Date: 20141212
  Serious: Yes (Hospitalization)
  Sender: FDA-Public Use
  Company Number: AU-009507513-1405AUS007587

PATIENT
  Age: 46 Year
  Sex: Male

DRUGS (4)
  1. RIBAVIRIN [Suspect]
     Indication: HEPATITIS C
     Dosage: 1000 MG, UNK
     Route: 048
     Dates: start: 20130222, end: 20140122
  2. INTERFERON ALFA-2A [Suspect]
     Indication: HEPATITIS C
     Dosage: 135 MICROGRAM, QW
     Route: 058
     Dates: start: 20130222, end: 20140120
  3. PRISTIQ [Concomitant]
  4. PROPRANOLOL HYDROCHLORIDE [Concomitant]

REACTIONS (1)
  - Urinary tract infection [Recovering/Resolving]
